FAERS Safety Report 9386664 (Version 2)
Quarter: 2013Q3

REPORT INFORMATION
  Report Type: Report from Study
  Country: AU (occurrence: AU)
  Receive Date: 20130708
  Receipt Date: 20130830
  Transmission Date: 20140515
  Serious: Yes (Other)
  Sender: FDA-Public Use
  Company Number: PHHY2013AU071254

PATIENT
  Sex: Female

DRUGS (8)
  1. ACLASTA [Suspect]
     Dosage: 5 MG, UNK
     Route: 042
     Dates: start: 20100625
  2. ACLASTA [Suspect]
     Dosage: 5 MG, UNK
     Route: 042
     Dates: start: 20110714
  3. ACLASTA [Suspect]
     Dosage: 5 MG, UNK
     Route: 042
     Dates: start: 20120622
  4. BACTRIM DS [Concomitant]
     Indication: GRANULOMATOSIS WITH POLYANGIITIS
     Dosage: EVERY SECOND DAY
     Route: 048
     Dates: start: 20120726
  5. CALTRATE + VITAMIN D [Concomitant]
     Indication: GRANULOMATOSIS WITH POLYANGIITIS
     Dosage: BID
     Route: 048
  6. MEGATROL [Concomitant]
     Indication: GRANULOMATOSIS WITH POLYANGIITIS
     Dosage: 1 DF EXCEPT FRIDAY
     Route: 048
     Dates: start: 20120726
  7. METHOBLASTIN [Concomitant]
     Indication: GRANULOMATOSIS WITH POLYANGIITIS
     Dosage: 10 MG EVERY FRIDAY
     Route: 048
     Dates: start: 20120726
  8. PREDNISONE [Concomitant]
     Indication: GRANULOMATOSIS WITH POLYANGIITIS
     Dosage: 5 MG, UNK
     Route: 048
     Dates: start: 20120726

REACTIONS (3)
  - Granulomatosis with polyangiitis [Not Recovered/Not Resolved]
  - Malaise [Unknown]
  - Influenza [Unknown]
